FAERS Safety Report 7006484-7 (Version None)
Quarter: 2010Q3

REPORT INFORMATION
  Report Type: 
  Country: None (occurrence: None)
  Receive Date: 20100921
  Receipt Date: 20100908
  Transmission Date: 20110219
  Serious: Yes (Other)
  Sender: FDA-Public Use
  Company Number: GB-GENENTECH-305996

PATIENT

DRUGS (2)
  1. LUCENTIS [Suspect]
     Indication: PRODUCT USED FOR UNKNOWN INDICATION
     Dosage: 1 DF, SINGLE
     Route: 031
     Dates: start: 20100709
  2. LUCENTIS [Suspect]
     Dosage: 1 DF, SINGLE
     Route: 031
     Dates: start: 20100818, end: 20100818

REACTIONS (3)
  - CORNEAL LESION [None]
  - DEPOSIT EYE [None]
  - RETINAL DYSTROPHY [None]
